FAERS Safety Report 6800581-4 (Version None)
Quarter: 2010Q2

REPORT INFORMATION
  Report Type: 
  Country: None (occurrence: None)
  Receive Date: 20100625
  Receipt Date: 20100625
  Transmission Date: 20101027
  Serious: Yes (Death, Hospitalization)
  Sender: FDA-Public Use
  Company Number: None

PATIENT
  Age: 59 Year
  Sex: Male
  Weight: 59 kg

DRUGS (7)
  1. ZIAGEN [Suspect]
     Indication: HIV INFECTION
     Dosage: 300 MG QD ORAL
     Route: 048
     Dates: start: 20100303, end: 20100524
  2. VIDEX [Suspect]
     Indication: HIV INFECTION
     Dosage: 400 MG QD ORAL
     Route: 048
     Dates: start: 20100303, end: 20100524
  3. LOPINAVIR/RITONAVIR (ALUVIA) [Suspect]
     Indication: HIV INFECTION
     Dosage: 1000 MG BID ORAL
     Route: 048
     Dates: start: 20100303, end: 20100524
  4. COTRIMOXAZOLE (SEPTRIN) [Concomitant]
  5. METFORMIN HCL [Concomitant]
  6. DIABINESE [Concomitant]
  7. ENALAPRIL MALEATE [Concomitant]

REACTIONS (14)
  - ABDOMINAL DISTENSION [None]
  - BLOOD ALBUMIN DECREASED [None]
  - BLOOD BICARBONATE DECREASED [None]
  - BLOOD GLUCOSE ABNORMAL [None]
  - BLOOD LACTATE DEHYDROGENASE INCREASED [None]
  - BLOOD PRESSURE IMMEASURABLE [None]
  - CARDIAC FAILURE CONGESTIVE [None]
  - ELECTROCARDIOGRAM REPOLARISATION ABNORMALITY [None]
  - GENERAL PHYSICAL HEALTH DETERIORATION [None]
  - LUNG CONSOLIDATION [None]
  - PLEURAL EFFUSION [None]
  - RESPIRATORY DISTRESS [None]
  - SINUS TACHYCARDIA [None]
  - VIROLOGIC FAILURE [None]
